FAERS Safety Report 9879553 (Version 1)
Quarter: 2014Q1

REPORT INFORMATION
  Report Type: Spontaneous
  Country: MY (occurrence: MY)
  Receive Date: 20140206
  Receipt Date: 20140206
  Transmission Date: 20141002
  Serious: Yes (Death)
  Sender: FDA-Public Use
  Company Number: MY-WATSON-2014-01405

PATIENT
  Age: 38 Year
  Sex: Male

DRUGS (4)
  1. TRIHEXYPHENIDYL HYDROCHLORIDE (WATSON LABORATORIES) [Suspect]
     Indication: SCHIZOPHRENIA, CATATONIC TYPE
     Dosage: 1 MG, TID
     Route: 048
  2. SULPIRIDE [Suspect]
     Indication: SCHIZOPHRENIA, CATATONIC TYPE
     Dosage: 200 MG, TID
     Route: 048
  3. CHLOROQUINE [Concomitant]
     Indication: CEREBRAL MALARIA
     Dosage: UNK
     Route: 048
  4. FANSIDAR [Concomitant]
     Indication: CEREBRAL MALARIA
     Dosage: UNK
     Route: 048

REACTIONS (2)
  - Neuroleptic malignant syndrome [Fatal]
  - Multi-organ failure [Fatal]
